FAERS Safety Report 4988494-4 (Version None)
Quarter: 2006Q2

REPORT INFORMATION
  Report Type: 
  Country: None (occurrence: None)
  Receive Date: 20060502
  Receipt Date: 20051129
  Transmission Date: 20061013
  Serious: No
  Sender: FDA-Public Use
  Company Number: S2005US15813

PATIENT
  Age: 80 Year
  Sex: Female

DRUGS (1)
  1. AMOXIL [Suspect]
     Indication: DRUG USE FOR UNKNOWN INDICATION
     Route: 065

REACTIONS (1)
  - ERYTHEMA [None]
